FAERS Safety Report 9980499 (Version 1)
Quarter: 2014Q1

REPORT INFORMATION
  Report Type: Spontaneous
  Country: US (occurrence: None)
  Receive Date: 20140305
  Receipt Date: 20140305
  Transmission Date: 20141002
  Serious: Yes (Hospitalization)
  Sender: FDA-Public Use
  Company Number: None

PATIENT
  Age: 52 Year
  Sex: Female

DRUGS (1)
  1. STIVARGA 40MG BAYER [Suspect]
     Dosage: 4 TABLETS, QDX21, 7XOFF, ORAL
     Route: 048
     Dates: start: 20140131, end: 20140208

REACTIONS (4)
  - Ocular icterus [None]
  - Pain [None]
  - Diarrhoea [None]
  - Unevaluable event [None]
